FAERS Safety Report 21612432 (Version 1)
Quarter: 2022Q4

REPORT INFORMATION
  Report Type: Other
  Country: JP (occurrence: JP)
  Receive Date: 20221118
  Receipt Date: 20221118
  Transmission Date: 20230113
  Serious: Yes (Other)
  Sender: FDA-Public Use
  Company Number: JP-CHUGAI-2022045546

PATIENT
  Age: 40 Year
  Sex: Male
  Weight: 71.4 kg

DRUGS (3)
  1. ENTRECTINIB [Suspect]
     Active Substance: ENTRECTINIB
     Indication: Non-small cell lung cancer
     Route: 048
     Dates: start: 20210928, end: 20211004
  2. ENTRECTINIB [Suspect]
     Active Substance: ENTRECTINIB
     Route: 048
     Dates: start: 20211012, end: 20220107
  3. ENTRECTINIB [Suspect]
     Active Substance: ENTRECTINIB
     Route: 048
     Dates: start: 20220108, end: 20220930

REACTIONS (1)
  - Renal disorder [Unknown]
